FAERS Safety Report 11767364 (Version 37)
Quarter: 2016Q4

REPORT INFORMATION
  Report Type: Spontaneous
  Country: US (occurrence: US)
  Receive Date: 20151123
  Receipt Date: 20161004
  Transmission Date: 20170206
  Serious: Yes (Hospitalization, Other)
  Sender: FDA-Public Use
  Company Number: US-PFIZER INC-2015395463

PATIENT
  Age: 42 Year
  Sex: Male
  Weight: 107 kg

DRUGS (38)
  1. DEPO-PROVERA [Suspect]
     Active Substance: MEDROXYPROGESTERONE ACETATE
     Indication: MENTAL DISORDER
     Dosage: 40 ML, EVERY 3 MONTHS
     Route: 030
     Dates: start: 20151016, end: 20160229
  2. DEPO-PROVERA [Suspect]
     Active Substance: MEDROXYPROGESTERONE ACETATE
     Indication: SEXUALLY INAPPROPRIATE BEHAVIOUR
     Dosage: UNK
     Dates: start: 201604
  3. ABILIFY [Concomitant]
     Active Substance: ARIPIPRAZOLE
     Indication: SCHIZOPHRENIA
     Dosage: 20 MG, 1X/DAY
     Dates: start: 2000
  4. ADDERALL [Concomitant]
     Active Substance: AMPHETAMINE ASPARTATE\AMPHETAMINE SULFATE\DEXTROAMPHETAMINE SACCHARATE\DEXTROAMPHETAMINE SULFATE
     Dosage: 20 MG, 2X/DAY
  5. DEPO-PROVERA [Suspect]
     Active Substance: MEDROXYPROGESTERONE ACETATE
     Dosage: UNK
     Route: 030
     Dates: start: 20151015
  6. ABILIFY [Concomitant]
     Active Substance: ARIPIPRAZOLE
     Indication: SEDATION
     Dosage: 15 MG, 1X/DAY (IN THE MORNING)
     Route: 048
     Dates: start: 2013
  7. XANAX [Concomitant]
     Active Substance: ALPRAZOLAM
     Indication: SEDATION
  8. DEPO-PROVERA [Suspect]
     Active Substance: MEDROXYPROGESTERONE ACETATE
     Indication: SEXUAL DYSFUNCTION
     Dosage: 300 MG
     Route: 030
     Dates: start: 20151015
  9. DEPO-PROVERA [Suspect]
     Active Substance: MEDROXYPROGESTERONE ACETATE
     Indication: NEUROPSYCHIATRIC SYMPTOMS
     Dosage: 300 MG, EVERY 3 MONTHS
     Dates: start: 20151023
  10. ABILIFY [Concomitant]
     Active Substance: ARIPIPRAZOLE
     Dosage: 30 MG, 1X/DAY
  11. LORAZEPAM. [Concomitant]
     Active Substance: LORAZEPAM
     Indication: SLEEP DISORDER
     Dosage: 30 MG, 1X/DAY (AT NIGHT)
     Route: 048
     Dates: start: 2013
  12. ADDERALL [Concomitant]
     Active Substance: AMPHETAMINE ASPARTATE\AMPHETAMINE SULFATE\DEXTROAMPHETAMINE SACCHARATE\DEXTROAMPHETAMINE SULFATE
     Indication: ATTENTION DEFICIT/HYPERACTIVITY DISORDER
     Dosage: 40 MG, 1X/DAY
  13. ADDERALL [Concomitant]
     Active Substance: AMPHETAMINE ASPARTATE\AMPHETAMINE SULFATE\DEXTROAMPHETAMINE SACCHARATE\DEXTROAMPHETAMINE SULFATE
     Dosage: 10 MG, 2X/DAY
  14. ATIVAN [Concomitant]
     Active Substance: LORAZEPAM
     Indication: SCHIZOPHRENIA
     Dosage: 2 MG, 3X/DAY
     Dates: start: 2000
  15. ATIVAN [Concomitant]
     Active Substance: LORAZEPAM
     Indication: ANXIETY
     Dosage: 20 MG, 1X/DAY
     Dates: start: 20160523
  16. VICKS NYQUIL [Concomitant]
     Active Substance: ACETAMINOPHEN\DEXTROMETHORPHAN HYDROBROMIDE\DOXYLAMINE SUCCINATE
     Indication: SLEEP DISORDER
     Dosage: UNK
  17. ABILIFY [Concomitant]
     Active Substance: ARIPIPRAZOLE
     Dosage: 25 MG, 1X/DAY (ONCE IN MORNING)
  18. XANAX [Concomitant]
     Active Substance: ALPRAZOLAM
     Indication: ANXIETY
  19. ADDERALL [Concomitant]
     Active Substance: AMPHETAMINE ASPARTATE\AMPHETAMINE SULFATE\DEXTROAMPHETAMINE SACCHARATE\DEXTROAMPHETAMINE SULFATE
     Indication: SCHIZOPHRENIA
     Dosage: 20 MG, 1X/DAY (EVERY MORNING)
     Route: 048
     Dates: start: 2015
  20. FLURAZEPAM [Concomitant]
     Active Substance: FLURAZEPAM\FLURAZEPAM HYDROCHLORIDE
     Indication: INSOMNIA
  21. DEPO-PROVERA [Suspect]
     Active Substance: MEDROXYPROGESTERONE ACETATE
     Indication: HORMONE LEVEL ABNORMAL
     Dosage: 1 DF, EVERY 3 MONTHS (300 CC INJECTED INTRAMUSCULARLY EVERY THREE MONTHS)
     Dates: start: 20151016
  22. DEPO-PROVERA [Suspect]
     Active Substance: MEDROXYPROGESTERONE ACETATE
     Indication: ANTIANDROGEN THERAPY
     Dosage: UNK
     Dates: start: 20160429
  23. MEDROXYPROGESTERONE ACETATE. [Suspect]
     Active Substance: MEDROXYPROGESTERONE ACETATE
     Indication: MENTAL DISORDER
     Dosage: UNK
     Dates: start: 20151016, end: 20160229
  24. ALEVE [Concomitant]
     Active Substance: NAPROXEN SODIUM
     Dosage: UNK
  25. POTASSIUM [Concomitant]
     Active Substance: POTASSIUM
  26. TRAZODONE [Concomitant]
     Active Substance: TRAZODONE HYDROCHLORIDE
     Indication: INSOMNIA
     Dosage: 100 MG, 1X/DAY (AT NIGHT)
  27. DEPO-PROVERA [Suspect]
     Active Substance: MEDROXYPROGESTERONE ACETATE
     Indication: SCHIZOPHRENIA
     Dosage: UNK
     Dates: start: 20151016, end: 20151020
  28. DEPO-PROVERA [Suspect]
     Active Substance: MEDROXYPROGESTERONE ACETATE
     Dosage: 125 TO 300CC, 1X/DAY
     Route: 030
     Dates: start: 201510
  29. FLURAZEPAM [Concomitant]
     Active Substance: FLURAZEPAM\FLURAZEPAM HYDROCHLORIDE
     Indication: SCHIZOPHRENIA
     Dosage: 3 MG, 1X/DAY
  30. BENZODIAZEPAM [Concomitant]
     Dosage: 2 MG, 3X/DAY
  31. XANAX [Concomitant]
     Active Substance: ALPRAZOLAM
     Indication: SCHIZOPHRENIA
     Dosage: 2 MG, 3X/DAY
     Route: 048
  32. ATIVAN [Concomitant]
     Active Substance: LORAZEPAM
     Indication: SEDATION
     Dosage: 2 MG, DAILY
  33. FLURAZEPAM [Concomitant]
     Active Substance: FLURAZEPAM\FLURAZEPAM HYDROCHLORIDE
     Indication: SEDATION
     Dosage: 30 MG, 1X/DAY (AT NIGHT AT BEDTIME)
  34. DEPO-PROVERA [Suspect]
     Active Substance: MEDROXYPROGESTERONE ACETATE
     Dosage: UNK
     Dates: start: 20151016
  35. DEPO-PROVERA [Suspect]
     Active Substance: MEDROXYPROGESTERONE ACETATE
     Dosage: 400 MG, UNK
     Route: 030
  36. MEDROXYPROGESTERONE ACETATE. [Suspect]
     Active Substance: MEDROXYPROGESTERONE ACETATE
     Indication: SEXUAL DYSFUNCTION
     Dosage: UNK
     Dates: start: 20151015
  37. ABILIFY [Concomitant]
     Active Substance: ARIPIPRAZOLE
     Indication: PSYCHIATRIC SYMPTOM
     Dosage: 25 MG, UNK
  38. ATIVAN [Concomitant]
     Active Substance: LORAZEPAM
     Indication: PSYCHIATRIC SYMPTOM

REACTIONS (81)
  - Mental impairment [Not Recovered/Not Resolved]
  - Somnolence [Not Recovered/Not Resolved]
  - Loss of libido [Not Recovered/Not Resolved]
  - Stress [Not Recovered/Not Resolved]
  - Hypotonia [Not Recovered/Not Resolved]
  - Dizziness [Not Recovered/Not Resolved]
  - Lethargy [Not Recovered/Not Resolved]
  - Aggression [Unknown]
  - Cutis laxa [Unknown]
  - Dyspnoea [Not Recovered/Not Resolved]
  - Erectile dysfunction [Not Recovered/Not Resolved]
  - Tachyphrenia [Not Recovered/Not Resolved]
  - Depression [Not Recovered/Not Resolved]
  - Apathy [Not Recovered/Not Resolved]
  - Sexual dysfunction [Not Recovered/Not Resolved]
  - Dizziness postural [Unknown]
  - Back pain [Not Recovered/Not Resolved]
  - Incorrect dose administered [Unknown]
  - Product use issue [Not Recovered/Not Resolved]
  - Product use issue [Unknown]
  - Delusion [Not Recovered/Not Resolved]
  - Fatigue [Not Recovered/Not Resolved]
  - Infectious mononucleosis [Not Recovered/Not Resolved]
  - Oral discomfort [Not Recovered/Not Resolved]
  - Semen volume decreased [Not Recovered/Not Resolved]
  - Swelling face [Unknown]
  - Malaise [Not Recovered/Not Resolved]
  - Fat tissue increased [Unknown]
  - Sensory disturbance [Unknown]
  - Psychotic disorder [Recovered/Resolved]
  - Anorgasmia [Not Recovered/Not Resolved]
  - Mood swings [Not Recovered/Not Resolved]
  - Asthenia [Not Recovered/Not Resolved]
  - Feeling abnormal [Not Recovered/Not Resolved]
  - Eating disorder [Not Recovered/Not Resolved]
  - Abnormal behaviour [Not Recovered/Not Resolved]
  - Salivary hypersecretion [Unknown]
  - Pain [Not Recovered/Not Resolved]
  - Pain in extremity [Unknown]
  - Non-24-hour sleep-wake disorder [Not Recovered/Not Resolved]
  - Loss of consciousness [Not Recovered/Not Resolved]
  - Suicide attempt [Unknown]
  - Renal failure [Unknown]
  - Gynaecomastia [Not Recovered/Not Resolved]
  - Cardiac disorder [Not Recovered/Not Resolved]
  - Nervousness [Unknown]
  - Muscle disorder [Not Recovered/Not Resolved]
  - Limb injury [Unknown]
  - Intentional product misuse [Unknown]
  - Auditory disorder [Unknown]
  - Altered state of consciousness [Not Recovered/Not Resolved]
  - Multiple organ dysfunction syndrome [Unknown]
  - Emotional disorder [Not Recovered/Not Resolved]
  - Attention deficit/hyperactivity disorder [Unknown]
  - Respiratory rate decreased [Unknown]
  - Aptyalism [Not Recovered/Not Resolved]
  - Thirst decreased [Not Recovered/Not Resolved]
  - Hypersomnia [Not Recovered/Not Resolved]
  - Skin odour abnormal [Not Recovered/Not Resolved]
  - Weight increased [Not Recovered/Not Resolved]
  - Blood testosterone abnormal [Unknown]
  - Vomiting [Not Recovered/Not Resolved]
  - Renal pain [Unknown]
  - Cognitive disorder [Not Recovered/Not Resolved]
  - Hypopnoea [Not Recovered/Not Resolved]
  - Rapid eye movement sleep behaviour disorder [Unknown]
  - Nausea [Unknown]
  - Musculoskeletal pain [Unknown]
  - Neuralgia [Unknown]
  - Anger [Not Recovered/Not Resolved]
  - Total lung capacity decreased [Not Recovered/Not Resolved]
  - Paranoia [Not Recovered/Not Resolved]
  - Anxiety [Not Recovered/Not Resolved]
  - Ejaculation failure [Unknown]
  - Insomnia [Not Recovered/Not Resolved]
  - Weight decreased [Not Recovered/Not Resolved]
  - Vision blurred [Not Recovered/Not Resolved]
  - Disturbance in attention [Unknown]
  - Hypotrichosis [Not Recovered/Not Resolved]
  - Loss of dreaming [Not Recovered/Not Resolved]
  - Abdominal distension [Unknown]

NARRATIVE: CASE EVENT DATE: 2015
